FAERS Safety Report 4602189-8 (Version None)
Quarter: 2005Q2

REPORT INFORMATION
  Report Type: 
  Country: None (occurrence: None)
  Receive Date: 20050215
  Receipt Date: 20040928
  Transmission Date: 20051028
  Serious: Yes (Life-Threatening)
  Sender: FDA-Public Use
  Company Number: MC200400636

PATIENT

DRUGS (1)
  1. ANGIOMAX [Suspect]
     Dosage: INTRAVENOUS
     Route: 042
     Dates: start: 20040901, end: 20040901

REACTIONS (1)
  - CORONARY ARTERY THROMBOSIS [None]
